FAERS Safety Report 18593378 (Version 5)
Quarter: 2021Q3

REPORT INFORMATION
  Report Type: Spontaneous
  Country: JP (occurrence: JP)
  Receive Date: 20201209
  Receipt Date: 20210716
  Transmission Date: 20211014
  Serious: Yes (Hospitalization)
  Sender: FDA-Public Use
  Company Number: JP-ROCHE-2728326

PATIENT
  Age: 55 Year
  Sex: Female
  Weight: 44 kg

DRUGS (13)
  1. VALIXA [Suspect]
     Active Substance: VALGANCICLOVIR
     Indication: CYTOMEGALOVIRUS GASTROINTESTINAL INFECTION
     Dosage: EVERY OTHER DAY
     Route: 048
     Dates: start: 20201106, end: 20201126
  2. DIFLUCAN [Suspect]
     Active Substance: FLUCONAZOLE
     Indication: FUNGAL INFECTION
     Route: 048
     Dates: start: 20201111
  3. SPIRONOLACTONE. [Suspect]
     Active Substance: SPIRONOLACTONE
     Indication: RENAL FAILURE
     Route: 048
  4. FLUITRAN (JAPAN) [Suspect]
     Active Substance: TRICHLORMETHIAZIDE
     Indication: RENAL FAILURE
     Route: 048
  5. DAPTOMYCIN. [Concomitant]
     Active Substance: DAPTOMYCIN
     Dates: start: 20201006, end: 20201110
  6. PREDONINE [Concomitant]
     Active Substance: PREDNISOLONE
  7. BACTRIM [Suspect]
     Active Substance: SULFAMETHOXAZOLE\TRIMETHOPRIM
     Indication: PROPHYLAXIS
     Dosage: 1 DOSAGE FORM
     Route: 048
  8. BENIDIPINE HYDROCHLORIDE [Suspect]
     Active Substance: BENIDIPINE HYDROCHLORIDE
     Indication: HYPERTENSION
     Route: 048
  9. ITRIZOLE [Concomitant]
     Active Substance: ITRACONAZOLE
     Dates: start: 20201201
  10. CEFAZOLIN SODIUM. [Concomitant]
     Active Substance: CEFAZOLIN SODIUM
     Dates: start: 20201006, end: 20201110
  11. MICAFUNGIN SODIUM [Concomitant]
     Active Substance: MICAFUNGIN SODIUM
     Dates: start: 20201006, end: 20201110
  12. FUROSEMIDE. [Suspect]
     Active Substance: FUROSEMIDE
     Indication: RENAL FAILURE
     Route: 048
  13. MEROPENEM. [Concomitant]
     Active Substance: MEROPENEM
     Dates: start: 20201006, end: 20201110

REACTIONS (3)
  - Neutropenia [Recovering/Resolving]
  - Product prescribing issue [Unknown]
  - Myelosuppression [Unknown]

NARRATIVE: CASE EVENT DATE: 20201201
